FAERS Safety Report 5958646-5 (Version None)
Quarter: 2008Q4

REPORT INFORMATION
  Report Type: 
  Country: None (occurrence: None)
  Receive Date: 20081119
  Receipt Date: 20081107
  Transmission Date: 20090506
  Serious: Yes (Other)
  Sender: FDA-Public Use
  Company Number: JP-PFIZER INC-2008095011

PATIENT
  Age: 73 Year
  Sex: Male

DRUGS (1)
  1. MYCOBUTIN [Suspect]
     Indication: TUBERCULOSIS
     Route: 048
     Dates: start: 20081023, end: 20081106

REACTIONS (3)
  - ANAEMIA [None]
  - PYREXIA [None]
  - RENAL IMPAIRMENT [None]
